FAERS Safety Report 20202873 (Version 1)
Quarter: 2021Q4

REPORT INFORMATION
  Report Type: Spontaneous
  Country: IN (occurrence: IN)
  Receive Date: 20211218
  Receipt Date: 20211218
  Transmission Date: 20220303
  Serious: Yes (Other)
  Sender: FDA-Public Use
  Company Number: IN-PBT-000241

PATIENT
  Age: 27 Year

DRUGS (1)
  1. TACROLIMUS [Suspect]
     Active Substance: TACROLIMUS
     Indication: Glomerulonephritis membranous
     Route: 065

REACTIONS (4)
  - Haemolytic uraemic syndrome [Unknown]
  - Posterior reversible encephalopathy syndrome [Unknown]
  - Product use in unapproved indication [Unknown]
  - Thrombotic microangiopathy [Unknown]
